FAERS Safety Report 4992261-5 (Version None)
Quarter: 2006Q2

REPORT INFORMATION
  Report Type: 
  Country: None (occurrence: None)
  Receive Date: 20060502
  Receipt Date: 20060418
  Transmission Date: 20061013
  Serious: Yes (Hospitalization)
  Sender: FDA-Public Use
  Company Number: 2006SP001731

PATIENT
  Age: 78 Year
  Sex: Female
  Weight: 90.7194 kg

DRUGS (4)
  1. LUNESTA [Suspect]
     Indication: INSOMNIA
     Dosage: 2 MG; 1X; ORAL
     Route: 048
     Dates: start: 20060414, end: 20060414
  2. METOPROLOL TARTRATE [Concomitant]
  3. POTASSIUM [Concomitant]
  4. DIURETICS [Concomitant]

REACTIONS (8)
  - ATRIAL FIBRILLATION [None]
  - DEPRESSION [None]
  - EMOTIONAL DISORDER [None]
  - HYPERTENSION [None]
  - INSOMNIA [None]
  - NAUSEA [None]
  - THERAPY NON-RESPONDER [None]
  - VOMITING [None]
